FAERS Safety Report 8811476 (Version 1)
Quarter: 2012Q4

REPORT INFORMATION
  Report Type: 
  Country: US (occurrence: US)
  Receive Date: 20120927
  Receipt Date: 20120927
  Transmission Date: 20130627
  Serious: Yes (Other)
  Sender: FDA-Public Use
  Company Number: US-TEVA-361310USA

PATIENT
  Age: 73 Year
  Sex: Female

DRUGS (2)
  1. TREANDA [Suspect]
     Indication: NON-HODGKIN^S LYMPHOMA
     Dosage: 150mg/m/sq
     Route: 042
  2. HYDROCODONE [Suspect]

REACTIONS (2)
  - Hypotension [Unknown]
  - Overdose [Unknown]
